FAERS Safety Report 16243458 (Version 1)
Quarter: 2019Q2

REPORT INFORMATION
  Report Type: Spontaneous
  Country: US (occurrence: US)
  Receive Date: 20190426
  Receipt Date: 20190426
  Transmission Date: 20190711
  Serious: No
  Sender: FDA-Public Use
  Company Number: US-MYLANLABS-2019M1033962

PATIENT
  Sex: Female

DRUGS (1)
  1. DIAZEPAM TABLETS USP [Suspect]
     Active Substance: DIAZEPAM
     Indication: ANXIETY
     Dosage: UNK
     Route: 048

REACTIONS (2)
  - Expired product administered [Not Recovered/Not Resolved]
  - Wrong technique in product usage process [Not Recovered/Not Resolved]
